FAERS Safety Report 6304086-9 (Version None)
Quarter: 2009Q3

REPORT INFORMATION
  Report Type: 
  Country: None (occurrence: None)
  Receive Date: 20090810
  Receipt Date: 20090810
  Transmission Date: 20100115
  Serious: Yes (Other)
  Sender: FDA-Public Use
  Company Number: None

PATIENT
  Age: 68 Year
  Sex: Male
  Weight: 93 kg

DRUGS (6)
  1. IXABEPILONE [Suspect]
     Indication: PROSTATE CANCER
     Dosage: 73MG EVERY 3WEEKS IV
     Route: 042
     Dates: start: 20090402, end: 20090609
  2. OMEPRAZOLE [Concomitant]
  3. AMLODIPINE [Concomitant]
  4. COZAAR [Concomitant]
  5. K-DUR [Concomitant]
  6. ASPIRIN [Concomitant]

REACTIONS (1)
  - TONSIL CANCER [None]
